FAERS Safety Report 25685482 (Version 1)
Quarter: 2025Q3

REPORT INFORMATION
  Report Type: Spontaneous
  Country: US (occurrence: None)
  Receive Date: 20250814
  Receipt Date: 20250814
  Transmission Date: 20251021
  Serious: No
  Sender: FDA-CTU
  Company Number: None

PATIENT
  Age: 8 Year
  Sex: Female

DRUGS (9)
  1. VIGABATRIN [Suspect]
     Active Substance: VIGABATRIN
     Indication: Partial seizures
  2. CLONAZEPAM [Concomitant]
     Active Substance: CLONAZEPAM
  3. ONDANSETRON HYDROCHLORIDE [Concomitant]
     Active Substance: ONDANSETRON HYDROCHLORIDE
  4. CLOBAZAM [Concomitant]
     Active Substance: CLOBAZAM
  5. ALBUTEROL [Concomitant]
     Active Substance: ALBUTEROL
  6. KEPPRA [Concomitant]
     Active Substance: LEVETIRACETAM
  7. FAMOTIDINE [Concomitant]
     Active Substance: FAMOTIDINE
  8. VALTOCO 10 MG DOSE [Concomitant]
  9. ALBUTEROL SULFATE [Concomitant]
     Active Substance: ALBUTEROL SULFATE

REACTIONS (7)
  - Stomatitis [None]
  - Abdominal pain upper [None]
  - Decreased appetite [None]
  - Fatigue [None]
  - Malaise [None]
  - Constipation [None]
  - Duodenogastric reflux [None]

NARRATIVE: CASE EVENT DATE: 20250813
